FAERS Safety Report 7744640-0 (Version None)
Quarter: 2011Q3

REPORT INFORMATION
  Report Type: 
  Country: None (occurrence: None)
  Receive Date: 20110912
  Receipt Date: 20110908
  Transmission Date: 20111222
  Serious: Yes (Other)
  Sender: FDA-Public Use
  Company Number: IE-ABBOTT-11P-229-0848045-00

PATIENT
  Age: 44 Year
  Sex: Female

DRUGS (8)
  1. VALPROIC ACID [Suspect]
     Indication: MUSCLE SPASMS
     Route: 048
     Dates: start: 19990101
  2. XENICAL [Concomitant]
     Indication: PRODUCT USED FOR UNKNOWN INDICATION
  3. QUININE SULFATE [Suspect]
     Dates: start: 20101201
  4. QUININE SULFATE [Suspect]
     Dates: start: 20080101, end: 20080101
  5. QUININE SULFATE [Suspect]
     Route: 065
     Dates: start: 20110301
  6. QUININE SULFATE [Suspect]
     Indication: MUSCLE SPASMS
     Route: 065
     Dates: start: 20040101, end: 20040101
  7. FOLIC ACID [Concomitant]
     Indication: PRODUCT USED FOR UNKNOWN INDICATION
  8. VALPROIC ACID [Suspect]
     Route: 065
     Dates: start: 20110301

REACTIONS (2)
  - THROMBOCYTOPENIA [None]
  - PURPURA [None]
